FAERS Safety Report 6499109-0 (Version None)
Quarter: 2009Q4

REPORT INFORMATION
  Report Type: 
  Country: None (occurrence: None)
  Receive Date: 20091215
  Receipt Date: 20091203
  Transmission Date: 20100525
  Serious: Yes (Hospitalization, Other)
  Sender: FDA-Public Use
  Company Number: BR-ELI_LILLY_AND_COMPANY-BR200911000402

PATIENT
  Age: 74 Year
  Sex: Male

DRUGS (5)
  1. HUMULIN N [Suspect]
     Indication: DIABETES MELLITUS
     Dosage: 40 IU, EACH MORNING
     Route: 065
     Dates: start: 20040101
  2. HUMULIN N [Suspect]
     Dosage: 16 IU, EACH EVENING
     Route: 065
  3. AAS [Concomitant]
     Indication: ANGIOPATHY
     Dosage: UNK, UNKNOWN
     Route: 065
  4. APROVEL [Concomitant]
     Dosage: UNK, DAILY (1/D)
     Route: 048
  5. VYTORIN [Concomitant]
     Dosage: UNK, DAILY (1/D)
     Route: 065

REACTIONS (4)
  - FEELING ABNORMAL [None]
  - HOSPITALISATION [None]
  - HYPOPHAGIA [None]
  - VISUAL IMPAIRMENT [None]
